FAERS Safety Report 10193092 (Version 2)
Quarter: 2014Q2

REPORT INFORMATION
  Report Type: Spontaneous
  Country: US (occurrence: US)
  Receive Date: 20140524
  Receipt Date: 20140524
  Transmission Date: 20141212
  Serious: No
  Sender: FDA-Public Use
  Company Number: US-SANOFI-AVENTIS-2012SA024861

PATIENT
  Age: 73 Year
  Sex: Male

DRUGS (9)
  1. VIAGRA [Concomitant]
  2. LANTUS SOLOSTAR [Suspect]
     Indication: TYPE 2 DIABETES MELLITUS
     Dosage: DOSE:40 UNIT(S)
     Route: 058
  3. LANTUS SOLOSTAR [Suspect]
     Indication: TYPE 2 DIABETES MELLITUS
     Dosage: DOSE:50 UNIT(S)
     Route: 058
  4. NEURONTIN [Suspect]
     Route: 065
  5. INSULIN ASPART [Suspect]
     Indication: DIABETES MELLITUS
     Route: 065
  6. LYRICA [Suspect]
     Indication: NEUROPATHY PERIPHERAL
     Route: 065
  7. SOLOSTAR [Concomitant]
     Indication: TYPE 2 DIABETES MELLITUS
  8. HUMALOG [Concomitant]
  9. ANTIHYPERTENSIVES [Concomitant]

REACTIONS (6)
  - Paraesthesia [Unknown]
  - Nausea [Unknown]
  - Muscle spasms [Unknown]
  - Gait disturbance [Unknown]
  - Blood glucose increased [Recovered/Resolved]
  - Glycosylated haemoglobin increased [Unknown]
